FAERS Safety Report 8091951-8 (Version None)
Quarter: 2012Q1

REPORT INFORMATION
  Report Type: 
  Country: None (occurrence: None)
  Receive Date: 20120130
  Receipt Date: 20120130
  Transmission Date: 20120608
  Serious: Yes (Hospitalization)
  Sender: FDA-Public Use
  Company Number: None

PATIENT
  Sex: Female
  Weight: 75.5 kg

DRUGS (1)
  1. ORENCIA [Suspect]
     Indication: RHEUMATOID ARTHRITIS
     Dosage: ORENCIA 750MG IV
     Route: 042
     Dates: start: 20101111

REACTIONS (8)
  - BONE PAIN [None]
  - RECTAL HAEMORRHAGE [None]
  - INFUSION RELATED REACTION [None]
  - CONDITION AGGRAVATED [None]
  - STRESS [None]
  - RHEUMATOID ARTHRITIS [None]
  - DEATH OF RELATIVE [None]
  - GASTRITIS [None]
